FAERS Safety Report 6586132-0 (Version None)
Quarter: 2010Q1

REPORT INFORMATION
  Report Type: 
  Country: None (occurrence: None)
  Receive Date: 20100216
  Receipt Date: 20100216
  Transmission Date: 20100710
  Serious: Yes (Hospitalization)
  Sender: FDA-Public Use
  Company Number: None

PATIENT
  Sex: Male
  Weight: 81.6475 kg

DRUGS (16)
  1. METHADONE [Suspect]
  2. COMATAN [Concomitant]
  3. SEROQUEL XR [Concomitant]
  4. ASPIRINK [Concomitant]
  5. NORVASE [Concomitant]
  6. TYLENOL-500 [Concomitant]
  7. SINEMET [Concomitant]
  8. PRILOSEC [Concomitant]
  9. MIRAPEX [Concomitant]
  10. SINGULAIR [Concomitant]
  11. ROBAXIN [Concomitant]
  12. LEVAQUIN [Concomitant]
  13. HYDROCHLOROTHIAZIDE [Concomitant]
  14. NEURONTIN [Concomitant]
  15. CLEOCIN [Concomitant]
  16. COREG [Concomitant]

REACTIONS (5)
  - DELIRIUM [None]
  - DRUG ADMINISTRATION ERROR [None]
  - INCORRECT DOSE ADMINISTERED [None]
  - PNEUMONIA [None]
  - SEDATION [None]
